FAERS Safety Report 25653497 (Version 1)
Quarter: 2025Q3

REPORT INFORMATION
  Report Type: Spontaneous
  Country: CA (occurrence: CA)
  Receive Date: 20250807
  Receipt Date: 20250807
  Transmission Date: 20251020
  Serious: Yes (Hospitalization, Other)
  Sender: Alvotech
  Company Number: None

PATIENT
  Age: 77 Year
  Sex: Female
  Weight: 81.633 kg

DRUGS (2)
  1. SIMLANDI [Suspect]
     Active Substance: ADALIMUMAB-RYVK
     Indication: Psoriasis
     Dosage: 40 MG,1 EVERY 2 WEEKS
     Route: 058
  2. SIMLANDI [Suspect]
     Active Substance: ADALIMUMAB-RYVK
     Indication: Psoriasis
     Route: 058

REACTIONS (6)
  - Type 2 diabetes mellitus [Not Recovered/Not Resolved]
  - Psoriasis [Not Recovered/Not Resolved]
  - Muscle spasms [Not Recovered/Not Resolved]
  - Malaise [Not Recovered/Not Resolved]
  - Fatigue [Not Recovered/Not Resolved]
  - Drug ineffective [Not Recovered/Not Resolved]
